FAERS Safety Report 18794041 (Version 2)
Quarter: 2021Q4

REPORT INFORMATION
  Report Type: Report from Study
  Country: US (occurrence: US)
  Receive Date: 20210127
  Receipt Date: 20211109
  Transmission Date: 20220303
  Serious: Yes (Other)
  Sender: FDA-Public Use
  Company Number: US-MYLANLABS-2020M1105329

PATIENT
  Age: 48 Year
  Sex: Male
  Weight: 77.098 kg

DRUGS (6)
  1. GLATIRAMER ACETATE [Suspect]
     Active Substance: GLATIRAMER ACETATE
     Indication: Relapsing-remitting multiple sclerosis
     Dosage: 40 MILLIGRAM, 3XW,3 TIMES WEEKLY
     Route: 058
     Dates: start: 20201027, end: 20201217
  2. ALBUTEROL SULFATE [Concomitant]
     Active Substance: ALBUTEROL SULFATE
     Dosage: 90 MILLIGRAM,  EVERY 4 HOURS PRN
  3. FLOVENT HFA [Concomitant]
     Active Substance: FLUTICASONE PROPIONATE
     Dosage: 220 MILLIGRAM, QD
  4. CLEMASTINE [Concomitant]
     Active Substance: CLEMASTINE
     Dosage: UNK
  5. IBUPROFEN [Concomitant]
     Active Substance: IBUPROFEN
     Dosage: 2.68 MILLIGRAM, ONE HOUR BEFORE INJECTION
  6. LIDOCAINE [Concomitant]
     Active Substance: LIDOCAINE
     Dosage: ONE HOUR BEFORE INJECTLON AND AT SITE AFTER INJECTION

REACTIONS (11)
  - Tunnel vision [Unknown]
  - Syncope [Unknown]
  - Dizziness [Recovered/Resolved]
  - Lethargy [Recovered/Resolved]
  - Feeling hot [Unknown]
  - Flushing [Recovered/Resolved]
  - Asthenia [Unknown]
  - Nausea [Unknown]
  - Headache [Unknown]
  - Injection site pain [Recovered/Resolved]
  - Injection site reaction [Unknown]

NARRATIVE: CASE EVENT DATE: 20201217
